FAERS Safety Report 7909034-3 (Version None)
Quarter: 2011Q4

REPORT INFORMATION
  Report Type: 
  Country: None (occurrence: None)
  Receive Date: 20111111
  Receipt Date: 20111102
  Transmission Date: 20120403
  Serious: Yes (Hospitalization, Other)
  Sender: FDA-Public Use
  Company Number: US-BAYER-201035142NA

PATIENT
  Age: 35 Year
  Sex: Female
  Weight: 56.689 kg

DRUGS (1)
  1. YASMIN [Suspect]
     Indication: ORAL CONTRACEPTION
     Route: 048
     Dates: start: 20060301, end: 20061201

REACTIONS (1)
  - CEREBROVASCULAR ACCIDENT [None]
